FAERS Safety Report 25229192 (Version 1)
Quarter: 2025Q2

REPORT INFORMATION
  Report Type: Spontaneous
  Country: US (occurrence: US)
  Receive Date: 20250423
  Receipt Date: 20250423
  Transmission Date: 20250717
  Serious: No
  Sender: ROCHE
  Company Number: US-ROCHE-10000257848

PATIENT
  Age: 63 Year
  Sex: Female

DRUGS (9)
  1. XOLAIR [Suspect]
     Active Substance: OMALIZUMAB
     Indication: Chronic spontaneous urticaria
     Dosage: STRENGTH: 150 MG/ML
     Route: 065
     Dates: start: 20161130
  2. CROMOLYN SODIUM [Concomitant]
     Active Substance: CROMOLYN SODIUM
     Indication: Chronic spontaneous urticaria
  3. MONTELUKAST [Concomitant]
     Active Substance: MONTELUKAST
     Indication: Chronic spontaneous urticaria
  4. FAMOTIDINE [Concomitant]
     Active Substance: FAMOTIDINE
     Indication: Chronic spontaneous urticaria
  5. LEVOCETIRIZINE [Concomitant]
     Active Substance: LEVOCETIRIZINE
     Indication: Chronic spontaneous urticaria
  6. DESLORATADINE [Concomitant]
     Active Substance: DESLORATADINE
     Indication: Chronic spontaneous urticaria
  7. DOXEPIN [Concomitant]
     Active Substance: DOXEPIN
     Indication: Chronic spontaneous urticaria
  8. HYDROXYCHLOROQUINE [Concomitant]
     Active Substance: HYDROXYCHLOROQUINE
     Indication: Chronic spontaneous urticaria
  9. CYCLOSPORINE [Concomitant]
     Active Substance: CYCLOSPORINE
     Indication: Chronic spontaneous urticaria

REACTIONS (2)
  - Off label use [Unknown]
  - Burning sensation [Unknown]

NARRATIVE: CASE EVENT DATE: 20241101
